FAERS Safety Report 24740065 (Version 1)
Quarter: 2024Q4

REPORT INFORMATION
  Report Type: Spontaneous
  Country: FR (occurrence: FR)
  Receive Date: 20241216
  Receipt Date: 20241216
  Transmission Date: 20250115
  Serious: Yes (Other)
  Sender: BRISTOL-MYERS SQUIBB COMPANY
  Company Number: None

PATIENT
  Age: 84 Year
  Sex: Female
  Weight: 54 kg

DRUGS (9)
  1. ELIQUIS [Suspect]
     Active Substance: APIXABAN
     Indication: Product used for unknown indication
     Route: 048
     Dates: start: 20241106, end: 20241106
  2. AMLODIPINE BESYLATE [Suspect]
     Active Substance: AMLODIPINE BESYLATE
     Indication: Hypertension
     Route: 048
     Dates: start: 20241106, end: 20241106
  3. BISOPROLOL FUMARATE [Suspect]
     Active Substance: BISOPROLOL FUMARATE
     Indication: Wrong patient
     Route: 048
     Dates: start: 20241106, end: 20241106
  4. RAMIPRIL [Suspect]
     Active Substance: RAMIPRIL
     Indication: Wrong patient
     Route: 048
     Dates: start: 20241106, end: 20241106
  5. CYAMEMAZINE [Suspect]
     Active Substance: CYAMEMAZINE
     Indication: Wrong patient
     Route: 048
     Dates: start: 20241106, end: 20241106
  6. HALOPERIDOL [Suspect]
     Active Substance: HALOPERIDOL
     Indication: Wrong patient
     Route: 048
     Dates: start: 20241106, end: 20241106
  7. TIAPRIDE HYDROCHLORIDE [Suspect]
     Active Substance: TIAPRIDE HYDROCHLORIDE
     Indication: Wrong patient
     Route: 048
     Dates: start: 20241106, end: 20241106
  8. TRAMADOL [Suspect]
     Active Substance: TRAMADOL
     Indication: Wrong patient
     Route: 048
     Dates: start: 20241106, end: 20241106
  9. SERTRALINE [Suspect]
     Active Substance: SERTRALINE HYDROCHLORIDE
     Indication: Wrong patient
     Route: 048
     Dates: start: 20241106, end: 20241106

REACTIONS (5)
  - Malaise [Recovered/Resolved]
  - Bradycardia [Recovered/Resolved]
  - Electrocardiogram QT prolonged [Recovered/Resolved]
  - Dysarthria [Recovered/Resolved]
  - Wrong patient [Recovered/Resolved]

NARRATIVE: CASE EVENT DATE: 20241106
